FAERS Safety Report 5116208-6 (Version None)
Quarter: 2006Q3

REPORT INFORMATION
  Report Type: 
  Country: None (occurrence: None)
  Receive Date: 20060927
  Receipt Date: 20060925
  Transmission Date: 20061208
  Serious: Yes (Other)
  Sender: FDA-Public Use
  Company Number: US-GLAXOSMITHKLINE-A0621227A

PATIENT
  Age: 19 Year
  Sex: Male

DRUGS (1)
  1. NICODERM CQ [Suspect]
     Route: 062
     Dates: start: 20060923, end: 20060925

REACTIONS (2)
  - MUSCLE ATROPHY [None]
  - PAIN IN EXTREMITY [None]
